FAERS Safety Report 5746274-6 (Version None)
Quarter: 2008Q2

REPORT INFORMATION
  Report Type: 
  Country: None (occurrence: None)
  Receive Date: 20080522
  Receipt Date: 20080519
  Transmission Date: 20081010
  Serious: Yes (Death, Other)
  Sender: FDA-Public Use
  Company Number: PHEH2007US15947

PATIENT
  Sex: Female

DRUGS (1)
  1. ZOMETA [Suspect]

REACTIONS (9)
  - BRAIN NEOPLASM [None]
  - BREAST CANCER [None]
  - DRUG TOXICITY [None]
  - FACIAL PAIN [None]
  - HYPOAESTHESIA FACIAL [None]
  - OSTEONECROSIS [None]
  - OVERDOSE [None]
  - POISONING [None]
  - SPEECH DISORDER [None]
